FAERS Safety Report 5162483-1 (Version None)
Quarter: 2006Q4

REPORT INFORMATION
  Report Type: 
  Country: None (occurrence: None)
  Receive Date: 20061127
  Receipt Date: 20061127
  Transmission Date: 20070319
  Serious: Yes (Other)
  Sender: FDA-Public Use
  Company Number: None

PATIENT
  Age: 70 Year
  Sex: Female

DRUGS (2)
  1. PROTONIX [Suspect]
     Dosage: 40 MG DAILY PO IV
     Route: 042
     Dates: start: 20060626, end: 20060730
  2. PREVACID [Suspect]
     Dosage: 30 MG DAILY GT
     Dates: start: 20060730, end: 20060802

REACTIONS (2)
  - COLON CANCER [None]
  - POLYMYOSITIS [None]
